FAERS Safety Report 8874097 (Version 2)
Quarter: 2015Q2

REPORT INFORMATION
  Report Type: Report from Study
  Country: US (occurrence: US)
  Receive Date: 20121023
  Receipt Date: 20150408
  Transmission Date: 20150821
  Serious: Yes (Death)
  Sender: FDA-Public Use
  Company Number: US-ROCHE-1129802

PATIENT
  Age: 53 Year
  Sex: Female

DRUGS (9)
  1. ZOFRAN [Concomitant]
     Active Substance: ONDANSETRON HYDROCHLORIDE
  2. HEPARIN [Concomitant]
     Active Substance: HEPARIN SODIUM
     Dosage: ADJUSTED DOSE
     Route: 058
     Dates: start: 19990118
  3. EPOGEN [Concomitant]
     Active Substance: ERYTHROPOIETIN
     Route: 065
  4. HERCEPTIN [Suspect]
     Active Substance: TRASTUZUMAB
     Indication: LUNG NEOPLASM MALIGNANT
     Dosage: LOADING DOSE 329 MG
     Route: 042
     Dates: start: 19990125
  5. LASIX [Concomitant]
     Active Substance: FUROSEMIDE
     Route: 042
  6. DULCOLAX (BISACODYL) [Concomitant]
     Active Substance: BISACODYL
  7. HERCEPTIN [Suspect]
     Active Substance: TRASTUZUMAB
     Dosage: MAINTENANCE DOSE 165 MG
     Route: 042
  8. GEMZAR [Concomitant]
     Active Substance: GEMCITABINE HYDROCHLORIDE
  9. EPOGEN [Concomitant]
     Active Substance: ERYTHROPOIETIN
     Dosage: 60,000
     Route: 058

REACTIONS (14)
  - Oedema peripheral [Unknown]
  - Weight increased [Unknown]
  - Back pain [Unknown]
  - Pain [Unknown]
  - Sinus tachycardia [Unknown]
  - Chest discomfort [Unknown]
  - Dyspnoea [Unknown]
  - Hypercoagulation [Unknown]
  - Peripheral swelling [Unknown]
  - Nausea [Unknown]
  - Fatigue [Unknown]
  - QRS axis abnormal [Unknown]
  - Malaise [Unknown]
  - Death [Fatal]

NARRATIVE: CASE EVENT DATE: 19990219
